FAERS Safety Report 25514140 (Version 1)
Quarter: 2025Q3

REPORT INFORMATION
  Report Type: Spontaneous
  Country: KR (occurrence: KR)
  Receive Date: 20250703
  Receipt Date: 20250703
  Transmission Date: 20251021
  Serious: Yes (Death)
  Sender: ELI LILLY AND COMPANY
  Company Number: KR-ELI_LILLY_AND_COMPANY-KR202506013294

PATIENT
  Age: 54 Year
  Sex: Male

DRUGS (21)
  1. CYRAMZA [Suspect]
     Active Substance: RAMUCIRUMAB
     Indication: Product used for unknown indication
     Route: 042
     Dates: start: 20250121
  2. CYRAMZA [Suspect]
     Active Substance: RAMUCIRUMAB
     Route: 042
     Dates: start: 20250204
  3. CYRAMZA [Suspect]
     Active Substance: RAMUCIRUMAB
     Route: 042
     Dates: start: 20250219
  4. CYRAMZA [Suspect]
     Active Substance: RAMUCIRUMAB
     Route: 042
     Dates: start: 20250313
  5. CYRAMZA [Suspect]
     Active Substance: RAMUCIRUMAB
     Route: 042
     Dates: start: 20250522
  6. DAIHAN DEXTROSE [Concomitant]
     Indication: Product used for unknown indication
  7. PENIRAMIN [Concomitant]
     Indication: Product used for unknown indication
  8. SODIUM CHLORIDE [Concomitant]
     Active Substance: SODIUM CHLORIDE
     Indication: Product used for unknown indication
  9. DAIHAN ATROPINE SULFATE [Concomitant]
     Indication: Product used for unknown indication
  10. RAMSET [Concomitant]
     Indication: Product used for unknown indication
  11. IRINOTECAN [Concomitant]
     Active Substance: IRINOTECAN
     Indication: Product used for unknown indication
  12. HUMEDIX DEXAMETHASONE SODIUM PHOSPHATE [Concomitant]
     Indication: Product used for unknown indication
  13. FLUOROURACIL [Concomitant]
     Active Substance: FLUOROURACIL
     Indication: Product used for unknown indication
  14. SAMNAM LOPERAMIDE [Concomitant]
     Indication: Product used for unknown indication
  15. PROBIOTICS NOS [Concomitant]
     Active Substance: PROBIOTICS NOS
     Indication: Product used for unknown indication
  16. HUONS HEPARIN SODIUM [Concomitant]
     Indication: Product used for unknown indication
  17. AMINO ACIDS\DEXTROSE\ELECTROLYTES NOS\SOYBEAN OIL\VITAMINS [Concomitant]
     Active Substance: AMINO ACIDS\DEXTROSE\ELECTROLYTES NOS\SOYBEAN OIL\VITAMINS
     Indication: Product used for unknown indication
  18. FILGRASTIM [Concomitant]
     Active Substance: FILGRASTIM
     Indication: Product used for unknown indication
  19. SK ALBUMIN [Concomitant]
     Indication: Product used for unknown indication
  20. LEUCOSODIUM [Concomitant]
     Indication: Product used for unknown indication
  21. ACETYLCYSTEINE [Concomitant]
     Active Substance: ACETYLCYSTEINE
     Indication: Product used for unknown indication

REACTIONS (4)
  - Death [Fatal]
  - Inappropriate schedule of product administration [Unknown]
  - Pain [Not Recovered/Not Resolved]
  - Speech disorder [Not Recovered/Not Resolved]

NARRATIVE: CASE EVENT DATE: 20250219
